FAERS Safety Report 15369917 (Version 2)
Quarter: 2018Q3

REPORT INFORMATION
  Report Type: Spontaneous
  Country: AT (occurrence: AT)
  Receive Date: 20180911
  Receipt Date: 20180918
  Transmission Date: 20181010
  Serious: Yes (Other)
  Sender: FDA-Public Use
  Company Number: AT-ASTRAZENECA-2017SF12002

PATIENT
  Age: 70 Year
  Sex: Male

DRUGS (12)
  1. SUTENT [Concomitant]
     Active Substance: SUNITINIB MALATE
     Indication: PRODUCT USED FOR UNKNOWN INDICATION
     Route: 065
     Dates: start: 201610, end: 201703
  2. SUTENT [Concomitant]
     Active Substance: SUNITINIB MALATE
     Indication: PRODUCT USED FOR UNKNOWN INDICATION
     Dosage: 50.0MG UNKNOWN
     Route: 065
     Dates: start: 201610, end: 201703
  3. SUTENT [Concomitant]
     Active Substance: SUNITINIB MALATE
     Indication: METASTATIC RENAL CELL CARCINOMA
     Dosage: 37.5MG UNKNOWN
     Route: 065
     Dates: start: 201703
  4. DULOXETINE. [Concomitant]
     Active Substance: DULOXETINE
     Indication: PRODUCT USED FOR UNKNOWN INDICATION
  5. SUTENT [Concomitant]
     Active Substance: SUNITINIB MALATE
     Indication: METASTATIC RENAL CELL CARCINOMA
     Route: 065
     Dates: start: 201610, end: 201703
  6. SUTENT [Concomitant]
     Active Substance: SUNITINIB MALATE
     Indication: METASTATIC RENAL CELL CARCINOMA
     Dosage: 50.0MG UNKNOWN
     Route: 065
     Dates: start: 201610, end: 201703
  7. TRUXAL [Suspect]
     Active Substance: CHLORPROTHIXENE
     Indication: PRODUCT USED FOR UNKNOWN INDICATION
     Route: 065
  8. LORAZEPAM. [Suspect]
     Active Substance: LORAZEPAM
     Indication: PRODUCT USED FOR UNKNOWN INDICATION
     Route: 065
  9. SUTENT [Concomitant]
     Active Substance: SUNITINIB MALATE
     Indication: PRODUCT USED FOR UNKNOWN INDICATION
     Dosage: 37.5MG UNKNOWN
     Route: 065
     Dates: start: 201703
  10. LOPERAMID [Concomitant]
     Active Substance: LOPERAMIDE
     Indication: PRODUCT USED FOR UNKNOWN INDICATION
     Dosage: UP TO 6 TIMES PER DAY
  11. QUETIAPINE FUMARATE. [Suspect]
     Active Substance: QUETIAPINE FUMARATE
     Indication: PRODUCT USED FOR UNKNOWN INDICATION
     Route: 048
  12. MELPERON [Concomitant]
     Active Substance: MELPERONE
     Indication: PRODUCT USED FOR UNKNOWN INDICATION

REACTIONS (8)
  - Confusional state [Unknown]
  - Sleep disorder [Unknown]
  - Gait disturbance [Unknown]
  - Diarrhoea [Recovered/Resolved]
  - Blood pressure increased [Recovered/Resolved]
  - Drug abuse [Unknown]
  - Hallucination [Unknown]
  - Intentional overdose [Unknown]

NARRATIVE: CASE EVENT DATE: 201703
